FAERS Safety Report 5514028-1 (Version None)
Quarter: 2007Q4

REPORT INFORMATION
  Report Type: 
  Country: None (occurrence: None)
  Receive Date: 20071109
  Receipt Date: 20071109
  Transmission Date: 20080405
  Serious: Yes (Other)
  Sender: FDA-Public Use
  Company Number: None

PATIENT
  Age: 54 Year
  Sex: Female
  Weight: 72.5755 kg

DRUGS (2)
  1. PAXIL [Suspect]
     Indication: DEPRESSION
     Dosage: 30 MG ONE A DAY
     Dates: start: 19970216, end: 20070630
  2. PAXIL [Suspect]
     Indication: DEPRESSION
     Dosage: 30 MG ONE A DAY
     Dates: start: 20070822, end: 20071030

REACTIONS (14)
  - ANXIETY [None]
  - BACK PAIN [None]
  - COLD SWEAT [None]
  - CONDITION AGGRAVATED [None]
  - DEPRESSION [None]
  - FEELING ABNORMAL [None]
  - FEELING JITTERY [None]
  - FLIGHT OF IDEAS [None]
  - HYPOAESTHESIA [None]
  - MIDDLE INSOMNIA [None]
  - MUSCULOSKELETAL PAIN [None]
  - NIGHT SWEATS [None]
  - PARAESTHESIA [None]
  - TENSION [None]
